FAERS Safety Report 13468734 (Version 1)
Quarter: 2017Q2

REPORT INFORMATION
  Report Type: Other
  Country: IN (occurrence: IN)
  Receive Date: 20170421
  Receipt Date: 20170421
  Transmission Date: 20170830
  Serious: Yes (Hospitalization)
  Sender: FDA-Public Use
  Company Number: IN-B. BRAUN MEDICAL INC.-1065650

PATIENT
  Age: 13 Year
  Sex: Female

DRUGS (3)
  1. INSULIN [Concomitant]
     Active Substance: INSULIN NOS
  2. SODIUM CHLORIDE. [Suspect]
     Active Substance: SODIUM CHLORIDE
     Route: 040
  3. POTASSIUM [Concomitant]
     Active Substance: POTASSIUM

REACTIONS (2)
  - Brain oedema [Recovered/Resolved]
  - Acute respiratory distress syndrome [Recovered/Resolved]
